FAERS Safety Report 4523855-9 (Version None)
Quarter: 2004Q4

REPORT INFORMATION
  Report Type: 
  Country: None (occurrence: None)
  Receive Date: 20041206
  Receipt Date: 20041206
  Transmission Date: 20050328
  Serious: No
  Sender: FDA-Public Use
  Company Number: None

PATIENT
  Age: 71 Year
  Sex: Male
  Weight: 88.4514 kg

DRUGS (1)
  1. AORTIC HEART VALVE [Suspect]
     Dates: start: 20030320, end: 20041019

REACTIONS (10)
  - AORTIC STENOSIS [None]
  - AORTIC VALVE REPLACEMENT [None]
  - CARDIAC DISORDER [None]
  - CHEST DISCOMFORT [None]
  - CHEST PAIN [None]
  - CORONARY ARTERY SURGERY [None]
  - DEVICE FAILURE [None]
  - QRS AXIS ABNORMAL [None]
  - SURGICAL PROCEDURE REPEATED [None]
  - THROMBOSIS [None]
